FAERS Safety Report 6196971-6 (Version None)
Quarter: 2009Q2

REPORT INFORMATION
  Report Type: 
  Country: None (occurrence: None)
  Receive Date: 20090520
  Receipt Date: 20090513
  Transmission Date: 20091009
  Serious: Yes (Hospitalization)
  Sender: FDA-Public Use
  Company Number: PHHY2009MX19028

PATIENT
  Age: 39 Year

DRUGS (3)
  1. SIMULECT [Suspect]
     Indication: RENAL TRANSPLANT
     Dosage: 20 MG, ONCE/SINGLE
     Route: 042
  2. SOLU-MEDROL [Concomitant]
     Dosage: 1 G/DAY
     Route: 042
  3. CELLCEPT [Concomitant]
     Dosage: 1 G/DAY

REACTIONS (14)
  - ANAL SPHINCTER ATONY [None]
  - BRONCHOSPASM [None]
  - CEREBRAL HAEMATOMA [None]
  - CRANIOTOMY [None]
  - HYPERCAPNIA [None]
  - HYPERTENSIVE CRISIS [None]
  - NEUROLOGICAL SYMPTOM [None]
  - OLIGURIA [None]
  - RENAL HAEMATOMA [None]
  - RENAL IMPAIRMENT [None]
  - RENAL SURGERY [None]
  - RENAL VESSEL DISORDER [None]
  - SOMNOLENCE [None]
  - THROMBOCYTOPENIA [None]
